FAERS Safety Report 19614746 (Version 1)
Quarter: 2021Q3

REPORT INFORMATION
  Report Type: Spontaneous
  Country: ES (occurrence: ES)
  Receive Date: 20210727
  Receipt Date: 20210727
  Transmission Date: 20211014
  Serious: Yes (Other)
  Sender: FDA-Public Use
  Company Number: ES-DRREDDYS-LIT/SPN/21/0138125

PATIENT
  Age: 48 Year
  Sex: Female

DRUGS (8)
  1. IMATINIB. [Suspect]
     Active Substance: IMATINIB MESYLATE
     Indication: CHRONIC MYELOID LEUKAEMIA
     Dosage: WHICH SHOWED A COMPLETED MOLECULAR RESPONSE
  2. BISOPROLOL [Concomitant]
     Active Substance: BISOPROLOL
     Indication: PRODUCT USED FOR UNKNOWN INDICATION
  3. BEMIPARIN [Concomitant]
     Active Substance: BEMIPARIN
     Indication: PRODUCT USED FOR UNKNOWN INDICATION
  4. IMATINIB. [Interacting]
     Active Substance: IMATINIB MESYLATE
     Indication: LUNG ADENOCARCINOMA
     Dosage: FINALLY, THE DRUG WAS WITHDRAWN AT 22 DAYS.
  5. INSULIN?GLARGINE [Concomitant]
     Active Substance: INSULIN NOS
     Indication: PRODUCT USED FOR UNKNOWN INDICATION
  6. REPAGLINIDE. [Concomitant]
     Active Substance: REPAGLINIDE
     Indication: PRODUCT USED FOR UNKNOWN INDICATION
  7. GEFITINIB. [Interacting]
     Active Substance: GEFITINIB
     Indication: LUNG ADENOCARCINOMA
  8. GEFITINIB. [Interacting]
     Active Substance: GEFITINIB
     Indication: CHRONIC MYELOID LEUKAEMIA

REACTIONS (6)
  - Asthenia [Recovered/Resolved]
  - Pancreatitis acute [Recovered/Resolved]
  - Diarrhoea [Recovered/Resolved]
  - Nausea [Recovered/Resolved]
  - Drug interaction [Recovered/Resolved]
  - Vomiting [Recovered/Resolved]
